FAERS Safety Report 7427425-4 (Version None)
Quarter: 2011Q2

REPORT INFORMATION
  Report Type: 
  Country: None (occurrence: None)
  Receive Date: 20110420
  Receipt Date: 20110413
  Transmission Date: 20111010
  Serious: Yes (Hospitalization, Disabling)
  Sender: FDA-Public Use
  Company Number: NO-AMGEN-QUU420742

PATIENT
  Age: 84 Year
  Sex: Female
  Weight: 49.5 kg

DRUGS (13)
  1. DIURAL                             /00016901/ [Concomitant]
     Dosage: 60 MG, TID
     Route: 048
  2. DIGITOXIN TAB [Concomitant]
     Dosage: 0.05 MG, 3 TIMES/WK
     Route: 048
  3. NATRON                             /00049401/ [Concomitant]
     Dosage: 500 MG, TID
     Route: 048
  4. NIFEREX                            /00023501/ [Concomitant]
     Dosage: 100 MG, QD
     Route: 048
  5. KLEXANE                            /00889602/ [Concomitant]
     Dosage: 40 MG, UNK
     Route: 058
  6. NORSPAN                            /00444001/ [Concomitant]
     Dosage: 5 A?G, QH
  7. PRAVASTATIN [Concomitant]
     Dosage: 20 MG, QD
     Route: 048
  8. PINEX FORTE [Concomitant]
     Dosage: UNK UNK, PRN
     Route: 048
  9. ETALPHA                            /00454801/ [Concomitant]
     Dosage: 0.25 A?G, QD
     Route: 048
  10. ARANESP [Suspect]
     Indication: RENAL FAILURE CHRONIC
     Dosage: 40 A?G, QWK
     Route: 058
     Dates: start: 20081120, end: 20090605
  11. HIPREX [Concomitant]
     Dosage: 1 G, TID
     Route: 048
  12. ALLOPUR [Concomitant]
     Dosage: 100 MG, UNK
     Route: 048
  13. RENAGEL                            /01459901/ [Concomitant]
     Dosage: 800 MG, TID
     Route: 048

REACTIONS (8)
  - HAEMOGLOBIN INCREASED [None]
  - SPEECH DISORDER [None]
  - EMBOLIC STROKE [None]
  - DEHYDRATION [None]
  - AGITATION [None]
  - BLOOD PRESSURE INCREASED [None]
  - CONFUSIONAL STATE [None]
  - ANXIETY [None]
